FAERS Safety Report 15798155 (Version 1)
Quarter: 2019Q1

REPORT INFORMATION
  Report Type: Spontaneous
  Country: JP (occurrence: JP)
  Receive Date: 20190108
  Receipt Date: 20190108
  Transmission Date: 20190417
  Serious: Yes (Other)
  Sender: FDA-Public Use
  Company Number: JP-MYLANLABS-2019M1000735

PATIENT
  Age: 75 Year
  Sex: Male

DRUGS (5)
  1. RIFAMPICIN [Suspect]
     Active Substance: RIFAMPIN
     Indication: PULMONARY TUBERCULOSIS
     Dosage: ALONG WITH ISONIAZID, ETHAMBUTOL, AND PYRAZINAMIDE; LATER WAS GIVEN FOR 2 MONTHS AGAIN AND FOR AN...
     Route: 065
  2. ISONIAZID. [Suspect]
     Active Substance: ISONIAZID
     Indication: PULMONARY TUBERCULOSIS
     Dosage: ALONG WITH RIFAMPICIN, ETHAMBUTOL, AND PYRAZINAMIDE; LATER WAS GIVEN FOR 2 MONTHS AGAIN AND FOR A...
     Route: 065
  3. NIVOLUMAB [Suspect]
     Active Substance: NIVOLUMAB
     Indication: LUNG ADENOCARCINOMA STAGE IV
     Route: 065
  4. PYRAZINAMIDE. [Suspect]
     Active Substance: PYRAZINAMIDE
     Indication: PULMONARY TUBERCULOSIS
     Dosage: ALONG WITH RIFAMPICIN, ISONIAZID, AND PYRAZINAMIDE; LATER WAS GIVEN FOR 2 MONTHS AGAIN
     Route: 065
  5. ETHAMBUTOL [Suspect]
     Active Substance: ETHAMBUTOL HYDROCHLORIDE
     Indication: PULMONARY TUBERCULOSIS
     Dosage: ALONG WITH RIFAMPICIN, ISONIAZID, AND PYRAZINAMIDE; LATER WAS GIVEN FOR 2 MONTHS AGAIN
     Route: 065

REACTIONS (2)
  - Pulmonary tuberculosis [Recovered/Resolved]
  - Paradoxical drug reaction [Recovered/Resolved]
